FAERS Safety Report 8213199-6 (Version None)
Quarter: 2012Q1

REPORT INFORMATION
  Report Type: 
  Country: None (occurrence: None)
  Receive Date: 20120315
  Receipt Date: 20120312
  Transmission Date: 20120608
  Serious: Yes (Death)
  Sender: FDA-Public Use
  Company Number: ZA-ABBOTT-11P-143-0857938-00

PATIENT
  Sex: Male
  Weight: 85 kg

DRUGS (5)
  1. COSOPT [Concomitant]
     Indication: GLAUCOMA
  2. ATACAND [Concomitant]
     Indication: HYPERKINESIA
  3. HUMIRA [Suspect]
     Indication: ANKYLOSING SPONDYLITIS
     Route: 058
     Dates: start: 20080801, end: 20110804
  4. ACULAR [Concomitant]
     Indication: GLAUCOMA
  5. XALATAN [Concomitant]
     Indication: GLAUCOMA

REACTIONS (1)
  - DEATH [None]
